FAERS Safety Report 8897815 (Version 2)
Quarter: 2012Q4

REPORT INFORMATION
  Report Type: 
  Country: IT (occurrence: IT)
  Receive Date: 20121109
  Receipt Date: 20121213
  Transmission Date: 20130627
  Serious: Yes (Hospitalization)
  Sender: FDA-Public Use
  Company Number: IT-ELI_LILLY_AND_COMPANY-IT201210009827

PATIENT
  Age: 56 Year
  Sex: Male
  Weight: 74 kg

DRUGS (3)
  1. ALIMTA [Suspect]
     Indication: LUNG ADENOCARCINOMA
     Dosage: 850 mg/m2, unknown
     Route: 042
     Dates: start: 20120330, end: 20120330
  2. CARBOPLATIN [Concomitant]
     Indication: LUNG ADENOCARCINOMA
     Dosage: 750 mg, UNK
     Route: 042
     Dates: start: 20120330, end: 20120330
  3. ZOMETA [Concomitant]
     Indication: LUNG ADENOCARCINOMA
     Dosage: 4 mg, UNK
     Route: 042
     Dates: start: 20120310, end: 20120330

REACTIONS (4)
  - Off label use [Unknown]
  - Hiccups [Recovering/Resolving]
  - Oesophageal candidiasis [Recovering/Resolving]
  - Abdominal pain upper [Recovering/Resolving]
